FAERS Safety Report 7485170-3 (Version None)
Quarter: 2011Q2

REPORT INFORMATION
  Report Type: 
  Country: None (occurrence: None)
  Receive Date: 20110517
  Receipt Date: 20101206
  Transmission Date: 20111010
  Serious: No
  Sender: FDA-Public Use
  Company Number: US-BAYER-2010-006274

PATIENT
  Sex: Male
  Weight: 88 kg

DRUGS (12)
  1. ALEVE (CAPLET) [Suspect]
     Indication: PAIN IN EXTREMITY
     Dosage: 2 DF, BID
     Route: 048
  2. NEXIUM [Concomitant]
     Dosage: 40 MG, UNK
  3. ALLEGRA [Concomitant]
  4. ZOCOR [Concomitant]
     Dosage: 40 MG, UNK
  5. CARDIZEM [Concomitant]
     Dosage: 40 MG, UNK
  6. CENTRUM [Concomitant]
  7. REQUIP [Concomitant]
  8. ASPIRIN [Concomitant]
     Dosage: 325 MG, UNK
  9. ADVAIR DISKUS 100/50 [Concomitant]
  10. SPIRIVA [Concomitant]
  11. CALCIUM W/VITAMIN D NOS [Concomitant]
     Dosage: 600 MG + D
  12. UROXATRAL [Concomitant]

REACTIONS (3)
  - DYSPNOEA [None]
  - FATIGUE [None]
  - CONTUSION [None]
